FAERS Safety Report 23744385 (Version 3)
Quarter: 2025Q2

REPORT INFORMATION
  Report Type: Spontaneous
  Country: GR (occurrence: GR)
  Receive Date: 20240415
  Receipt Date: 20250523
  Transmission Date: 20250716
  Serious: Yes (Other)
  Sender: PFIZER
  Company Number: GR-PFIZER INC-PV202400047237

PATIENT
  Age: 26 Year
  Sex: Male

DRUGS (6)
  1. METHOTREXATE SODIUM [Suspect]
     Active Substance: METHOTREXATE SODIUM
     Indication: Central nervous system lymphoma
  2. RITUXIMAB [Suspect]
     Active Substance: RITUXIMAB
     Indication: Central nervous system lymphoma
  3. TENOFOVIR ALAFENAMIDE [Concomitant]
     Active Substance: TENOFOVIR ALAFENAMIDE
     Indication: Antiretroviral therapy
  4. EMTRICITABINE [Concomitant]
     Active Substance: EMTRICITABINE
     Indication: Antiretroviral therapy
  5. ELVITEGRAVIR [Concomitant]
     Active Substance: ELVITEGRAVIR
     Indication: Antiretroviral therapy
  6. COBICISTAT [Concomitant]
     Active Substance: COBICISTAT
     Indication: Antiretroviral therapy

REACTIONS (1)
  - Drug resistance [Unknown]
